FAERS Safety Report 22932941 (Version 5)
Quarter: 2023Q4

REPORT INFORMATION
  Report Type: Spontaneous
  Country: CA (occurrence: CA)
  Receive Date: 20230912
  Receipt Date: 20231123
  Transmission Date: 20240110
  Serious: Yes (Hospitalization, Other)
  Sender: FDA-Public Use
  Company Number: CA-CELLTRION INC.-2023CA017209

PATIENT

DRUGS (5)
  1. INFLECTRA [Suspect]
     Active Substance: INFLIXIMAB-DYYB
     Indication: Colitis ulcerative
     Dosage: 10 MG/KG, THIRD DOSE TO BE ADMINISTERED 2 WEEKS FROM THE 2ND W2 DOSE (25AUG2023)
     Route: 042
     Dates: start: 202308
  2. INFLECTRA [Suspect]
     Active Substance: INFLIXIMAB-DYYB
     Dosage: (10MG/KG) (WEEK 0)
     Route: 042
     Dates: start: 20230819
  3. INFLECTRA [Suspect]
     Active Substance: INFLIXIMAB-DYYB
     Dosage: 1 DF, UNKNOWN DOSAGE.WEEK 0, UNKNOWN IF INFLECTRA OR REMICADE
     Route: 042
     Dates: start: 20230819, end: 20230819
  4. INFLECTRA [Suspect]
     Active Substance: INFLIXIMAB-DYYB
     Dosage: 10 MG/KG (WEEK 2 DOSE)
     Route: 042
     Dates: start: 20230825
  5. INFLECTRA [Suspect]
     Active Substance: INFLIXIMAB-DYYB
     Dosage: 800 MG, EVERY 4 WEEKS
     Route: 042
     Dates: start: 20230914, end: 20230914

REACTIONS (11)
  - Condition aggravated [Not Recovered/Not Resolved]
  - Weight decreased [Unknown]
  - Therapeutic response shortened [Unknown]
  - Drug ineffective [Unknown]
  - Pain [Not Recovered/Not Resolved]
  - Dyspnoea exertional [Unknown]
  - Dry skin [Unknown]
  - Dry throat [Unknown]
  - Rash [Recovered/Resolved]
  - Off label use [Unknown]
  - Off label use [Unknown]

NARRATIVE: CASE EVENT DATE: 20230101
